FAERS Safety Report 9136146 (Version 1)
Quarter: 2013Q1

REPORT INFORMATION
  Report Type: Spontaneous
  Country: US (occurrence: US)
  Receive Date: 20130304
  Receipt Date: 20130304
  Transmission Date: 20140127
  Serious: No
  Sender: FDA-Public Use
  Company Number: US-ABBOTT-12P-163-0975116-00

PATIENT
  Sex: Male

DRUGS (1)
  1. ANDROGEL 1% [Suspect]
     Indication: PRODUCT USED FOR UNKNOWN INDICATION
     Dosage: 5 G STICK PACK
     Route: 061

REACTIONS (3)
  - Libido increased [Not Recovered/Not Resolved]
  - Drug effect increased [Unknown]
  - Product formulation issue [Unknown]
